FAERS Safety Report 14659734 (Version 1)
Quarter: 2018Q1

REPORT INFORMATION
  Report Type: Spontaneous
  Country: FR (occurrence: FR)
  Receive Date: 20180319
  Receipt Date: 20180319
  Transmission Date: 20180509
  Serious: Yes (Other)
  Sender: FDA-Public Use
  Company Number: FR-ELI_LILLY_AND_COMPANY-FR201803004069

PATIENT
  Age: 70 Year
  Sex: Female

DRUGS (2)
  1. ZYPREXA [Suspect]
     Active Substance: OLANZAPINE
     Indication: BIPOLAR I DISORDER
     Dosage: 7.5 MG, UNKNOWN
     Route: 065
     Dates: start: 200912, end: 201112
  2. ZYPREXA [Suspect]
     Active Substance: OLANZAPINE
     Dosage: 5 MG, UNKNOWN
     Route: 065
     Dates: start: 201112

REACTIONS (8)
  - Abdominal pain [Unknown]
  - Drug withdrawal syndrome [Unknown]
  - Scratch [Unknown]
  - Breast pain [Unknown]
  - Skin irritation [Unknown]
  - Speech disorder [Unknown]
  - Breast cancer [Unknown]
  - Purpura [Unknown]

NARRATIVE: CASE EVENT DATE: 201201
